FAERS Safety Report 4364115-9 (Version None)
Quarter: 2004Q2

REPORT INFORMATION
  Report Type: 
  Country: None (occurrence: None)
  Receive Date: 20040519
  Receipt Date: 20040507
  Transmission Date: 20050107
  Serious: Yes (Hospitalization, Other)
  Sender: FDA-Public Use
  Company Number: USA-2003-0009012

PATIENT
  Age: 35 Year
  Sex: Male
  Weight: 107.5 kg

DRUGS (26)
  1. OXYCONTIN [Suspect]
     Indication: PAIN
     Dosage: SEE IMAGE
     Dates: start: 19960101
  2. OXYCODONE HCL [Concomitant]
  3. TYLOX (OXYCODONE TEREPHTHALATE) [Concomitant]
  4. HYDROCODONE BITARTRATE [Concomitant]
  5. EFFEXOR [Concomitant]
  6. BUSPAR [Concomitant]
  7. ZOLOFT [Concomitant]
  8. COUMADIN [Concomitant]
  9. BACLOFEN (OMEPRAZOLE) [Concomitant]
  10. AXID [Concomitant]
  11. REGLAN [Concomitant]
  12. LORAZEPAM [Concomitant]
  13. ALBUTEROL [Concomitant]
  14. COMBIVENT (SALBUTAMOL SULFATE, IPRATROPIUM BROMIDE) INHALER [Concomitant]
  15. ZESTRIL [Concomitant]
  16. WELLBUTRIN [Concomitant]
  17. MOTRIN [Concomitant]
  18. PROZAC [Concomitant]
  19. NEURONTIN [Concomitant]
  20. SOMA [Concomitant]
  21. LORTAB [Concomitant]
  22. CLONIDINE [Concomitant]
  23. TRAZODONE HCL [Concomitant]
  24. BACTRIM [Concomitant]
  25. ACIPHEX [Concomitant]
  26. KLONOPIN [Concomitant]

REACTIONS (53)
  - ABDOMINAL PAIN [None]
  - AFFECTIVE DISORDER [None]
  - AMNESIA [None]
  - ANXIETY [None]
  - ASTHENIA [None]
  - BACK PAIN [None]
  - BURNING SENSATION [None]
  - CELLULITIS [None]
  - CHEST DISCOMFORT [None]
  - CONDITION AGGRAVATED [None]
  - CONFUSIONAL STATE [None]
  - CONSTIPATION [None]
  - CONVULSION [None]
  - CRYING [None]
  - DEEP VEIN THROMBOSIS [None]
  - DEPRESSION [None]
  - DRUG ABUSER [None]
  - DRUG DEPENDENCE [None]
  - DRUG INEFFECTIVE [None]
  - DRUG SCREEN POSITIVE [None]
  - DRUG TOLERANCE [None]
  - DRUG WITHDRAWAL SYNDROME [None]
  - DYSPNOEA [None]
  - FALL [None]
  - GASTRITIS [None]
  - HEADACHE [None]
  - HYPERHIDROSIS [None]
  - HYPOAESTHESIA [None]
  - INSOMNIA [None]
  - INTERNATIONAL NORMALISED RATIO INCREASED [None]
  - IRRITABILITY [None]
  - JOINT SWELLING [None]
  - MUSCLE SPASMS [None]
  - NAUSEA [None]
  - NERVOUSNESS [None]
  - PAIN EXACERBATED [None]
  - PALPITATIONS [None]
  - PARAESTHESIA [None]
  - PROSTATITIS [None]
  - PULMONARY EMBOLISM [None]
  - PYREXIA [None]
  - REFLUX OESOPHAGITIS [None]
  - RESPIRATORY FAILURE [None]
  - ROTATOR CUFF SYNDROME [None]
  - SELF ESTEEM DECREASED [None]
  - SINUS CONGESTION [None]
  - SKIN LACERATION [None]
  - SUICIDAL IDEATION [None]
  - TENSION [None]
  - TREMOR [None]
  - URETHRAL STRICTURE [None]
  - VOMITING [None]
  - WEIGHT DECREASED [None]
